FAERS Safety Report 6550443-5 (Version None)
Quarter: 2010Q1

REPORT INFORMATION
  Report Type: 
  Country: None (occurrence: None)
  Receive Date: 20100125
  Receipt Date: 20090922
  Transmission Date: 20100710
  Serious: No
  Sender: FDA-Public Use
  Company Number: US-ALLERGAN-0913290US

PATIENT
  Sex: Female

DRUGS (3)
  1. FML [Suspect]
     Indication: HERPES ZOSTER OPHTHALMIC
     Dosage: UNK
     Route: 047
  2. MURO 128 [Concomitant]
     Indication: CORNEAL OEDEMA
  3. EYE LUBRICANTS [Concomitant]
     Indication: DRY EYE

REACTIONS (2)
  - DRUG INEFFECTIVE [None]
  - EYE IRRITATION [None]
